FAERS Safety Report 19974553 (Version 1)
Quarter: 2021Q4

REPORT INFORMATION
  Report Type: Spontaneous
  Country: US (occurrence: US)
  Receive Date: 20211020
  Receipt Date: 20211020
  Transmission Date: 20220303
  Serious: No
  Sender: FDA-Public Use
  Company Number: US-PFIZER INC-2021739330

PATIENT
  Age: 30 Year
  Sex: Female

DRUGS (4)
  1. LEVOTHYROXINE SODIUM [Suspect]
     Active Substance: LEVOTHYROXINE SODIUM
     Dosage: UNK
     Route: 048
  2. ZOLOFT [Suspect]
     Active Substance: SERTRALINE HYDROCHLORIDE
     Dosage: UNK
     Route: 048
  3. WELLBUTRIN SR [Suspect]
     Active Substance: BUPROPION HYDROCHLORIDE
     Dosage: UNK
  4. BUSPIRONE HYDROCHLORIDE [Suspect]
     Active Substance: BUSPIRONE HYDROCHLORIDE
     Dosage: UNK

REACTIONS (10)
  - Drug ineffective [Unknown]
  - Obesity [Unknown]
  - Weight loss poor [Recovered/Resolved]
  - Sexual dysfunction [Unknown]
  - Gastric disorder [Unknown]
  - Defaecation disorder [Unknown]
  - Depression [Unknown]
  - Weight increased [Unknown]
  - Anxiety [Unknown]
  - Sleep apnoea syndrome [Unknown]
